FAERS Safety Report 23643095 (Version 1)
Quarter: 2024Q1

REPORT INFORMATION
  Report Type: Spontaneous
  Country: US (occurrence: US)
  Receive Date: 20240318
  Receipt Date: 20240318
  Transmission Date: 20240409
  Serious: No
  Sender: FDA-Public Use
  Company Number: US-PFIZER INC-202400065146

PATIENT
  Age: 67 Year
  Sex: Female
  Weight: 81.64 kg

DRUGS (3)
  1. CORTEF [Suspect]
     Active Substance: HYDROCORTISONE
     Dosage: 25 MG, DAILY (15MG IN THE MORNING AND 10MG IN THE AFTERNOON)
     Route: 048
  2. HYDROCORTISONE [Suspect]
     Active Substance: HYDROCORTISONE
     Dosage: 25 MG, DAILY(15MG IN THE MORNING AND 10MG IN THE AFTERNOON)
     Route: 048
     Dates: start: 2019
  3. HYDROCORTISONE [Suspect]
     Active Substance: HYDROCORTISONE
     Dosage: 80 MG
     Route: 048
     Dates: start: 20240304, end: 20240305

REACTIONS (1)
  - Blood potassium increased [Not Recovered/Not Resolved]

NARRATIVE: CASE EVENT DATE: 20240304
